FAERS Safety Report 7156736-5 (Version None)
Quarter: 2010Q4

REPORT INFORMATION
  Report Type: 
  Country: None (occurrence: None)
  Receive Date: 20101214
  Receipt Date: 20091207
  Transmission Date: 20110411
  Serious: No
  Sender: FDA-Public Use
  Company Number: US-ASTRAZENECA-2009SE30509

PATIENT
  Age: 859 Month
  Sex: Male
  Weight: 69.9 kg

DRUGS (11)
  1. CRESTOR [Suspect]
     Indication: BLOOD CHOLESTEROL INCREASED
     Route: 048
     Dates: start: 20040101
  2. NEXIUM [Concomitant]
  3. AVODART [Concomitant]
  4. DIOVAN [Concomitant]
  5. HYDROCHLOROTHIAZIDE [Concomitant]
  6. NORVASC [Concomitant]
  7. ASPIRIN [Concomitant]
  8. M.V.I. [Concomitant]
  9. VITAMIN B-12 [Concomitant]
  10. MAGNESIUM [Concomitant]
  11. VITAMIN E [Concomitant]

REACTIONS (2)
  - IMMUNODEFICIENCY [None]
  - WHITE BLOOD CELL COUNT DECREASED [None]
